FAERS Safety Report 8273391-1 (Version None)
Quarter: 2012Q2

REPORT INFORMATION
  Report Type: 
  Country: None (occurrence: None)
  Receive Date: 20120409
  Receipt Date: 20120409
  Transmission Date: 20120825
  Serious: Yes (Hospitalization)
  Sender: FDA-Public Use
  Company Number: None

PATIENT
  Sex: Male
  Weight: 11.2 kg

DRUGS (2)
  1. METHOTREXATE [Suspect]
     Dosage: 4480 MG
  2. VINCRISTINE SULFATE [Suspect]
     Dosage: .56 MG

REACTIONS (15)
  - NEOPLASM PROGRESSION [None]
  - PUPILLARY DISORDER [None]
  - HEART RATE INCREASED [None]
  - PCO2 INCREASED [None]
  - GRAND MAL CONVULSION [None]
  - BLOOD SODIUM DECREASED [None]
  - HYDROCEPHALUS [None]
  - BLOOD PH DECREASED [None]
  - DECEREBRATION [None]
  - PINEAL NEOPLASM [None]
  - VOMITING [None]
  - POSTURING [None]
  - GAIT DISTURBANCE [None]
  - DYSPHAGIA [None]
  - OXYGEN SATURATION DECREASED [None]
